FAERS Safety Report 13500208 (Version 1)
Quarter: 2017Q2

REPORT INFORMATION
  Report Type: Spontaneous
  Country: US (occurrence: US)
  Receive Date: 20170501
  Receipt Date: 20170501
  Transmission Date: 20170830
  Serious: Yes (Hospitalization, Other)
  Sender: FDA-Public Use
  Company Number: US-PFIZER INC-2017181469

PATIENT
  Age: 19 Year
  Sex: Male

DRUGS (3)
  1. EPINEPHRINE/LIDOCAINE HYDROCHLORIDE [Suspect]
     Active Substance: EPINEPHRINE\LIDOCAINE HYDROCHLORIDE
     Indication: NERVE BLOCK
     Dosage: 15 ML, UNK
     Route: 004
  2. PENTOBARBITAL SODIUM. [Concomitant]
     Active Substance: PENTOBARBITAL SODIUM
     Indication: ANAESTHESIA
     Dosage: 1 1/2 GRAINS AT 2:30 P.M.
  3. CODEINE SULFATE. [Concomitant]
     Active Substance: CODEINE SULFATE
     Dosage: 1/2 GRAIN
     Route: 048

REACTIONS (1)
  - Methaemoglobinaemia [Recovered/Resolved]
